FAERS Safety Report 16179770 (Version 6)
Quarter: 2020Q2

REPORT INFORMATION
  Report Type: Report from Study
  Country: CN (occurrence: CN)
  Receive Date: 20190410
  Receipt Date: 20200406
  Transmission Date: 20200713
  Serious: Yes (Life-Threatening)
  Sender: FDA-Public Use
  Company Number: CN-ROCHE-2297509

PATIENT
  Age: 63 Year
  Sex: Female
  Weight: 72 kg

DRUGS (10)
  1. METHOTREXATE. [Suspect]
     Active Substance: METHOTREXATE
     Indication: RHEUMATOID ARTHRITIS
     Dosage: DATE OF MOST RECENT DOSE (7.5 MG) OF OEN LABEL METHOTREXATE PRIOR TO NEUTROPHILIC GRANULOAYTOPENIA O
     Route: 048
     Dates: end: 20180816
  2. LEVOFLOXACIN MESYLATE [Concomitant]
     Active Substance: LEVOFLOXACIN MESYLATE
     Dosage: NOT FOR RHEUMATOID ARTHRITIS
     Route: 065
     Dates: start: 20180806, end: 20180815
  3. LEUCOGEN [Concomitant]
     Active Substance: LEUCOGEN
     Dosage: NOT FOR RHEUMATOID ARTHRITIS
     Route: 065
     Dates: start: 20180720
  4. METHOTREXATE (METHOTREXATE SODIUM) [Suspect]
     Active Substance: METHOTREXATE SODIUM
     Indication: RHEUMATOID ARTHRITIS
     Dosage: DATE OF MOST RECENT DOSE OF BLINDED METHOTREXATE PRIOR TO THE ONSET OF NEUTROPHILIC GRANULOAYTOPENIA
     Route: 048
     Dates: start: 20180111
  5. FELODIPINE. [Concomitant]
     Active Substance: FELODIPINE
     Dosage: NOT FOR RHEUMATOID ARTHRITIS
     Route: 065
     Dates: start: 201610
  6. BLINDED TOCILIZUMAB [Suspect]
     Active Substance: TOCILIZUMAB
     Indication: RHEUMATOID ARTHRITIS
     Dosage: DATE OF MOST RECENT DOSE OF BLINDED TOCILIZUMAB PRIOR TO NEUTROPHILIC GRANULOAYTOPENIA ONSET: ON 13/
     Route: 058
     Dates: start: 20180105
  7. FOLATE [Concomitant]
     Active Substance: FOLATE SODIUM
     Dosage: NOT FOR RHEUMATOID ARTHRITIS
     Route: 065
     Dates: start: 20171221
  8. TOCILIZUMAB. [Suspect]
     Active Substance: TOCILIZUMAB
     Indication: RHEUMATOID ARTHRITIS
     Dosage: DATE OF MOST RECENT DOSE OF OPEN LABEL TOCILIZUMAB PRIOR TO NEUTROPHILIC GRANULOAYTOPENIA ONSET: 22/
     Route: 058
  9. METHYLPREDNISOLONE. [Concomitant]
     Active Substance: METHYLPREDNISOLONE
     Dosage: FOR RHEUMATOID ARTHRITIS
     Route: 048
     Dates: start: 20180720
  10. CEFDINIR. [Concomitant]
     Active Substance: CEFDINIR
     Dosage: NOT FOR RHEUMATOID ARTHRITIS
     Route: 065
     Dates: start: 20180806, end: 20180815

REACTIONS (1)
  - Agranulocytosis [Recovered/Resolved]

NARRATIVE: CASE EVENT DATE: 20180831
